FAERS Safety Report 8348923-5 (Version None)
Quarter: 2012Q2

REPORT INFORMATION
  Report Type: 
  Country: None (occurrence: None)
  Receive Date: 20120508
  Receipt Date: 20120428
  Transmission Date: 20120825
  Serious: Yes (Other)
  Sender: FDA-Public Use
  Company Number: 217361

PATIENT
  Age: 78 Year
  Sex: Male

DRUGS (8)
  1. CLONAZEPAM [Concomitant]
  2. BYSTOLIC [Concomitant]
  3. SIMVASTATIN [Concomitant]
  4. CALCIPOTRIENE AND BETAMETHASONE DIPROPIONATE [Suspect]
     Indication: PSORIASIS
     Dosage: (1 IN 1 D), TOPICAL
     Route: 061
     Dates: start: 20120424, end: 20120427
  5. SYNTHROID [Concomitant]
  6. PLAVIX [Concomitant]
  7. LITHIUM CARBONATE [Concomitant]
  8. LISINOPRIL [Concomitant]

REACTIONS (4)
  - WRONG TECHNIQUE IN DRUG USAGE PROCESS [None]
  - ASTHENIA [None]
  - BLOOD PRESSURE INCREASED [None]
  - OVERDOSE [None]
